FAERS Safety Report 4952620-3 (Version None)
Quarter: 2006Q1

REPORT INFORMATION
  Report Type: 
  Country: None (occurrence: None)
  Receive Date: 20060320
  Receipt Date: 20060303
  Transmission Date: 20060701
  Serious: Yes (Hospitalization)
  Sender: FDA-Public Use
  Company Number: 8012483

PATIENT
  Age: 9 Year
  Sex: Male

DRUGS (4)
  1. METHYLPHENIDATE HCL [Suspect]
     Indication: ATTENTION DEFICIT/HYPERACTIVITY DISORDER
     Dosage: 15 MG 3/D
  2. RISPERIDONE [Suspect]
     Dosage: 1.5 MG 3/D
  3. CLONIDINE [Suspect]
     Dosage: 0.1 MG 1/D
  4. VALPROIC ACID [Suspect]
     Dosage: 250 MG 3/D PO
     Route: 048

REACTIONS (6)
  - ABNORMAL BEHAVIOUR [None]
  - AGGRESSION [None]
  - DRUG INTERACTION [None]
  - DYSTONIA [None]
  - PHYSICAL ASSAULT [None]
  - PSYCHOTIC DISORDER [None]
